FAERS Safety Report 7759406-5 (Version None)
Quarter: 2011Q3

REPORT INFORMATION
  Report Type: 
  Country: None (occurrence: None)
  Receive Date: 20110919
  Receipt Date: 20110913
  Transmission Date: 20111222
  Serious: Yes (Other)
  Sender: FDA-Public Use
  Company Number: US-JNJFOC-20100806064

PATIENT
  Sex: Female

DRUGS (4)
  1. LEVAQUIN [Suspect]
     Route: 048
     Dates: start: 20071212
  2. LEVAQUIN [Suspect]
     Route: 048
     Dates: start: 20080101, end: 20080101
  3. LEVAQUIN [Suspect]
     Indication: INFECTION
     Route: 048
     Dates: start: 20071212
  4. LEVAQUIN [Suspect]
     Indication: URINARY TRACT INFECTION
     Route: 048
     Dates: start: 20080101, end: 20080101

REACTIONS (3)
  - ANXIETY [None]
  - ROTATOR CUFF SYNDROME [None]
  - DEPRESSION [None]
